FAERS Safety Report 14682706 (Version 1)
Quarter: 2018Q1

REPORT INFORMATION
  Report Type: Spontaneous
  Country: GB (occurrence: GB)
  Receive Date: 20180327
  Receipt Date: 20180327
  Transmission Date: 20180509
  Serious: Yes (Other)
  Sender: FDA-Public Use
  Company Number: GB-ROCHE-2089934

PATIENT
  Sex: Female

DRUGS (1)
  1. HERCEPTIN [Suspect]
     Active Substance: TRASTUZUMAB
     Indication: PRODUCT USED FOR UNKNOWN INDICATION
     Route: 065

REACTIONS (8)
  - Alopecia [Unknown]
  - Fatigue [Unknown]
  - Vulvovaginal dryness [Unknown]
  - Arthralgia [Unknown]
  - Malaise [Unknown]
  - Neoplasm [Unknown]
  - Hot flush [Unknown]
  - Carpal tunnel syndrome [Unknown]
